FAERS Safety Report 6712001-9 (Version None)
Quarter: 2010Q2

REPORT INFORMATION
  Report Type: 
  Country: None (occurrence: None)
  Receive Date: 20100505
  Receipt Date: 20100429
  Transmission Date: 20101027
  Serious: Yes (Other)
  Sender: FDA-Public Use
  Company Number: US-PFIZER INC-2005145755

PATIENT
  Sex: Female
  Weight: 68 kg

DRUGS (3)
  1. PROVERA [Suspect]
     Indication: HORMONE REPLACEMENT THERAPY
     Dosage: UNK
     Route: 048
     Dates: start: 19890201, end: 19920501
  2. PREMARIN [Suspect]
     Indication: HORMONE REPLACEMENT THERAPY
     Dosage: 0.625 MG, UNK
     Route: 065
     Dates: start: 19890201, end: 19920501
  3. DIAZEPAM [Concomitant]
     Indication: VERTIGO
     Dosage: UNK
     Dates: start: 19780101, end: 20040101

REACTIONS (1)
  - BREAST CANCER [None]
